FAERS Safety Report 10555128 (Version 2)
Quarter: 2014Q4

REPORT INFORMATION
  Report Type: Spontaneous
  Country: US (occurrence: US)
  Receive Date: 20141030
  Receipt Date: 20141030
  Transmission Date: 20150529
  Serious: No
  Sender: FDA-Public Use
  Company Number: US-CUBIST PHARMACEUTICALS, INC.-2013CBST000997

PATIENT

DRUGS (4)
  1. CUBICIN [Suspect]
     Active Substance: DAPTOMYCIN
     Dosage: 500 MG, QD
     Route: 042
     Dates: start: 20130718, end: 20130815
  2. CUBICIN [Suspect]
     Active Substance: DAPTOMYCIN
     Indication: CELLULITIS
     Dosage: 6.5 MG/KG, QD
     Route: 042
     Dates: start: 20130718, end: 20130815
  3. INVANZ [Concomitant]
     Active Substance: ERTAPENEM SODIUM
     Indication: CELLULITIS
     Dosage: 1 G, QD
     Route: 042
  4. HEPARIN [Suspect]
     Active Substance: HEPARIN SODIUM
     Indication: PRODUCT USED FOR UNKNOWN INDICATION
     Dosage: UNK, UNK, UNK
     Route: 065
     Dates: start: 201310

REACTIONS (1)
  - Pain in extremity [Not Recovered/Not Resolved]
